FAERS Safety Report 24968130 (Version 2)
Quarter: 2025Q1

REPORT INFORMATION
  Report Type: Report from Study
  Country: US (occurrence: US)
  Receive Date: 20250214
  Receipt Date: 20250226
  Transmission Date: 20250408
  Serious: Yes (Death)
  Sender: JOHNSON AND JOHNSON
  Company Number: US-JNJFOC-20250211742

PATIENT
  Age: 46 Year
  Sex: Female

DRUGS (2)
  1. SPRAVATO [Suspect]
     Active Substance: ESKETAMINE
     Indication: Depression
     Route: 045
     Dates: start: 20240507, end: 20240507
  2. SPRAVATO [Suspect]
     Active Substance: ESKETAMINE
     Route: 045
     Dates: start: 20240510, end: 20250121

REACTIONS (3)
  - Completed suicide [Fatal]
  - Overdose [Fatal]
  - Illness [Unknown]

NARRATIVE: CASE EVENT DATE: 20250101
